FAERS Safety Report 18793945 (Version 2)
Quarter: 2021Q2

REPORT INFORMATION
  Report Type: Spontaneous
  Country: GB (occurrence: GB)
  Receive Date: 20210127
  Receipt Date: 20210513
  Transmission Date: 20210717
  Serious: Yes (Hospitalization)
  Sender: FDA-Public Use
  Company Number: GB-VERTEX PHARMACEUTICALS-2021-000869

PATIENT
  Age: 14 Year
  Sex: Male

DRUGS (2)
  1. KAFTRIO [Suspect]
     Active Substance: ELEXACAFTOR\IVACAFTOR\TEZACAFTOR
     Indication: CYSTIC FIBROSIS
     Dosage: 2 TABS (IVA 75 MG/ TEZA 50 MG/ ELEXA 100 MG) AM
     Route: 048
     Dates: start: 2020
  2. KALYDECO [Suspect]
     Active Substance: IVACAFTOR
     Indication: CYSTIC FIBROSIS
     Dosage: IVACAFTOR 150 MG; PM
     Route: 048

REACTIONS (2)
  - Diabetes mellitus inadequate control [Unknown]
  - Treatment noncompliance [Unknown]
